FAERS Safety Report 8908803 (Version 2)
Quarter: 2012Q4

REPORT INFORMATION
  Report Type: Report from Study
  Country: CA (occurrence: CA)
  Receive Date: 20121114
  Receipt Date: 20121119
  Transmission Date: 20130627
  Serious: Yes (Other)
  Sender: FDA-Public Use
  Company Number: CA-ROCHE-1154685

PATIENT
  Sex: Male
  Weight: 109.41 kg

DRUGS (1)
  1. CAPECITABINE [Suspect]
     Indication: COLORECTAL CANCER
     Route: 048
     Dates: start: 201012

REACTIONS (3)
  - Metastases to liver [Not Recovered/Not Resolved]
  - Blister [Recovered/Resolved]
  - Burning sensation [Recovered/Resolved]
